FAERS Safety Report 5833965-1 (Version None)
Quarter: 2008Q3

REPORT INFORMATION
  Report Type: 
  Country: None (occurrence: None)
  Receive Date: 20080731
  Receipt Date: 20080716
  Transmission Date: 20090109
  Serious: Yes (Death, Other)
  Sender: FDA-Public Use
  Company Number: 2008AL006535

PATIENT
  Age: 70 Year
  Sex: Male
  Weight: 79.3795 kg

DRUGS (3)
  1. DIGOXIN [Suspect]
     Indication: CARDIAC FAILURE CONGESTIVE
     Dosage: 0.125MG DAILY PO; 5 OR MORE YEARS
     Route: 048
  2. ASPIRIN [Concomitant]
  3. DIOVAN [Concomitant]

REACTIONS (5)
  - ASTHENIA [None]
  - CARDIOMYOPATHY [None]
  - MALAISE [None]
  - NAUSEA [None]
  - VENTRICULAR FIBRILLATION [None]
